FAERS Safety Report 8046689-X (Version None)
Quarter: 2012Q1

REPORT INFORMATION
  Report Type: 
  Country: None (occurrence: None)
  Receive Date: 20120116
  Receipt Date: 20120105
  Transmission Date: 20120608
  Serious: Yes (Other)
  Sender: FDA-Public Use
  Company Number: US-BRISTOL-MYERS SQUIBB COMPANY-16333734

PATIENT
  Age: 62 Year
  Sex: Female

DRUGS (1)
  1. SPRYCEL [Suspect]
     Indication: CHRONIC MYELOID LEUKAEMIA

REACTIONS (15)
  - DIARRHOEA [None]
  - OEDEMA [None]
  - GASTROINTESTINAL DISORDER [None]
  - ARTHRALGIA [None]
  - ABDOMINAL PAIN [None]
  - SKIN TOXICITY [None]
  - ANAEMIA [None]
  - FATIGUE [None]
  - NEUTROPENIA [None]
  - PLEURAL EFFUSION [None]
  - HEPATOTOXICITY [None]
  - RASH [None]
  - MYALGIA [None]
  - THROMBOCYTOPENIA [None]
  - NAUSEA [None]
